FAERS Safety Report 25917632 (Version 1)
Quarter: 2025Q4

REPORT INFORMATION
  Report Type: Spontaneous
  Country: US (occurrence: US)
  Receive Date: 20251014
  Receipt Date: 20251014
  Transmission Date: 20260118
  Serious: No
  Sender: TOLMAR
  Company Number: US-Tolmar-TLM-2025-07276

PATIENT

DRUGS (2)
  1. ELIGARD [Suspect]
     Active Substance: LEUPROLIDE ACETATE
     Indication: Prostate cancer
     Dosage: SN 2917052685193 ?GTIN: 00362935227106?JAN-2027; DEC-2026; NOV-2026
  2. DEVICE [Suspect]
     Active Substance: DEVICE
     Indication: Prostate cancer
     Dosage: SN 2917052685193 ?GTIN: 00362935227106?JAN-2027; DEC-2026; NOV-2026

REACTIONS (1)
  - Intentional dose omission [Unknown]
